FAERS Safety Report 7654354-3 (Version None)
Quarter: 2011Q3

REPORT INFORMATION
  Report Type: 
  Country: None (occurrence: None)
  Receive Date: 20110803
  Receipt Date: 20110729
  Transmission Date: 20111222
  Serious: Yes (Death)
  Sender: FDA-Public Use
  Company Number: NZ-PFIZER INC-2011176558

PATIENT

DRUGS (3)
  1. TRAZODONE HCL [Suspect]
  2. HYDROXYCHLOROQUINE [Suspect]
  3. METHOTREXATE [Suspect]

REACTIONS (2)
  - CARDIAC ARREST [None]
  - MYOCARDITIS [None]
